FAERS Safety Report 17412731 (Version 2)
Quarter: 2020Q1

REPORT INFORMATION
  Report Type: Spontaneous
  Country: HU (occurrence: HU)
  Receive Date: 20200213
  Receipt Date: 20200311
  Transmission Date: 20200409
  Serious: No
  Sender: FDA-Public Use
  Company Number: HU-009507513-2002HUN000831

PATIENT
  Age: 26 Year
  Sex: Female

DRUGS (4)
  1. ATOSIBAN [Concomitant]
     Active Substance: ATOSIBAN
     Indication: TOCOLYSIS
     Dosage: UNK
     Route: 065
  2. AMPICILLIN [Concomitant]
     Active Substance: AMPICILLIN
     Dosage: 1 G, QID
     Route: 042
  3. BETAMETHASONE DIPROPIONATE (+) BETAMETHASONE SODIUM PHOSPHATE [Suspect]
     Active Substance: BETAMETHASONE DIPROPIONATE\BETAMETHASONE SODIUM PHOSPHATE
     Indication: TOCOLYSIS
     Dosage: 2X12 MG
  4. AMPICILLIN [Concomitant]
     Active Substance: AMPICILLIN
     Dosage: 1 G, QID
     Route: 048

REACTIONS (1)
  - Maternal exposure during pregnancy [Recovered/Resolved]
